FAERS Safety Report 24590972 (Version 2)
Quarter: 2024Q4

REPORT INFORMATION
  Report Type: Spontaneous
  Country: US (occurrence: US)
  Receive Date: 20241107
  Receipt Date: 20241129
  Transmission Date: 20250115
  Serious: No
  Sender: ABBVIE
  Company Number: US-ABBVIE-5983982

PATIENT
  Sex: Female
  Weight: 46.2 kg

DRUGS (2)
  1. CARAFATE [Suspect]
     Active Substance: SUCRALFATE
     Indication: Gastrooesophageal reflux disease
     Dosage: FORM STRENGTH: 10 MILLIGRAM/MILLILITERS?START DATE: ATLEAST 8 YEARS AGO?FREQUENCY TEXT: 2 MILLILI...
     Route: 048
  2. SUCRALFATE [Suspect]
     Active Substance: SUCRALFATE
     Indication: Gastrooesophageal reflux disease
     Dosage: FORM STRENGTH: 10 MILLIGRAM/MILLILITERS
     Route: 048

REACTIONS (1)
  - Drug ineffective [Not Recovered/Not Resolved]
